FAERS Safety Report 25141336 (Version 2)
Quarter: 2025Q2

REPORT INFORMATION
  Report Type: Report from Study
  Country: JP (occurrence: JP)
  Receive Date: 20250331
  Receipt Date: 20250516
  Transmission Date: 20250717
  Serious: Yes (Hospitalization)
  Sender: RIGEL PHARMACEUTICALS
  Company Number: JP-KISSEI-TL20250268_P_1

PATIENT
  Age: 77 Year
  Sex: Female
  Weight: 56 kg

DRUGS (5)
  1. FOSTAMATINIB DISODIUM [Suspect]
     Active Substance: FOSTAMATINIB DISODIUM
     Indication: Immune thrombocytopenia
     Dosage: 100 MG, BID
     Route: 048
     Dates: start: 20230728, end: 20230921
  2. PREDNISOLONE [Concomitant]
     Active Substance: PREDNISOLONE
     Indication: Immune thrombocytopenia
     Dosage: 20 MG, QD
     Route: 048
  3. ROMIPLOSTIM [Concomitant]
     Active Substance: ROMIPLOSTIM
     Indication: Immune thrombocytopenia
     Route: 058
  4. PLATELETS [Concomitant]
     Active Substance: HUMAN PLATELET, ALLOGENIC
     Indication: Gastrointestinal haemorrhage
     Route: 041
     Dates: start: 20230827, end: 20230906
  5. PLATELETS [Concomitant]
     Active Substance: HUMAN PLATELET, ALLOGENIC
     Indication: Immune thrombocytopenia

REACTIONS (1)
  - Gastrointestinal haemorrhage [Recovered/Resolved]

NARRATIVE: CASE EVENT DATE: 20230818
